FAERS Safety Report 23382638 (Version 2)
Quarter: 2024Q1

REPORT INFORMATION
  Report Type: Spontaneous
  Country: US (occurrence: US)
  Receive Date: 20240109
  Receipt Date: 20240111
  Transmission Date: 20240410
  Serious: Yes (Hospitalization)
  Sender: FDA-Public Use
  Company Number: US-PFIZER INC-PV202400001191

PATIENT
  Age: 3 Year
  Sex: Male

DRUGS (19)
  1. TOFACITINIB [Suspect]
     Active Substance: TOFACITINIB
     Indication: Autoinflammatory disease
     Dosage: UNK
     Dates: start: 20230623, end: 20231025
  2. JAKAFI [Suspect]
     Active Substance: RUXOLITINIB
     Indication: Autoinflammatory disease
     Dosage: UNK
     Dates: start: 2023
  3. ANAKINRA [Suspect]
     Active Substance: ANAKINRA
     Indication: Autoinflammatory disease
     Dosage: 80 MG
     Dates: start: 20230216
  4. ANAKINRA [Suspect]
     Active Substance: ANAKINRA
     Dosage: 100 MG, 1X/DAY
  5. ANAKINRA [Suspect]
     Active Substance: ANAKINRA
     Dosage: 100 MG, 4X/DAY
     Dates: start: 202310, end: 20231021
  6. METHYLPREDNISOLONE [Concomitant]
     Active Substance: METHYLPREDNISOLONE
     Dosage: 2 MG/KG, 2X/DAY
     Route: 042
     Dates: start: 20231020
  7. METHYLPREDNISOLONE [Concomitant]
     Active Substance: METHYLPREDNISOLONE
     Dosage: 10 MG/KG
     Dates: start: 20231030
  8. METHYLPREDNISOLONE [Concomitant]
     Active Substance: METHYLPREDNISOLONE
     Dosage: 30 MG/KG
     Dates: start: 20231031
  9. CANAKINUMAB [Concomitant]
     Active Substance: CANAKINUMAB
     Dosage: UNK
     Dates: start: 20230517
  10. IMMUNE GLOBULIN NOS [Concomitant]
     Active Substance: IMMUNE GLOBULIN NOS
     Dosage: UNK (IVIG 2/KG)
     Route: 042
     Dates: start: 20231021
  11. BARICITINIB [Concomitant]
     Active Substance: BARICITINIB
     Dosage: 2 MG, 2X/DAY
     Dates: start: 20231025
  12. BARICITINIB [Concomitant]
     Active Substance: BARICITINIB
     Dosage: 2 MG, 2X/DAY
  13. CYCLOSPORINE [Concomitant]
     Active Substance: CYCLOSPORINE
     Dosage: 1 MG/KG, 2X/DAY
     Dates: start: 20231029
  14. CYCLOSPORINE [Concomitant]
     Active Substance: CYCLOSPORINE
     Dosage: 2 MG/KG, 2X/DAY
  15. EMAPALUMAB [Concomitant]
     Active Substance: EMAPALUMAB
     Dosage: UNK
     Dates: start: 20231116
  16. AZITHROMYCIN [Concomitant]
     Active Substance: AZITHROMYCIN
     Dosage: UNK
  17. EPINEPHRINE [Concomitant]
     Active Substance: EPINEPHRINE
     Dosage: UNK
     Dates: start: 20231123, end: 20231125
  18. HYDROCORTISONE ACETATE [Concomitant]
     Active Substance: HYDROCORTISONE ACETATE
     Dosage: UNK
     Dates: start: 20231124
  19. PENTAMIDINE [Concomitant]
     Active Substance: PENTAMIDINE
     Dosage: UNK

REACTIONS (5)
  - Autoinflammatory disease [Unknown]
  - Condition aggravated [Unknown]
  - Influenza [Unknown]
  - Otitis media [Unknown]
  - Off label use [Unknown]

NARRATIVE: CASE EVENT DATE: 20230101
